FAERS Safety Report 6976269-6 (Version None)
Quarter: 2010Q3

REPORT INFORMATION
  Report Type: 
  Country: None (occurrence: None)
  Receive Date: 20100910
  Receipt Date: 20100830
  Transmission Date: 20110219
  Serious: Yes (Other)
  Sender: FDA-Public Use
  Company Number: US-BAYER-201017151BCC

PATIENT
  Age: 86 Year
  Sex: Female
  Weight: 61 kg

DRUGS (9)
  1. PHILLIPS MILK OF MAGNESIA CHERRY [Suspect]
     Indication: CONSTIPATION
     Dosage: 1 CUP EVERY 4 DAYS / BOTTLE COUNT 26OZ
     Route: 048
     Dates: start: 20030101
  2. TRAMADOL HCL [Concomitant]
     Route: 065
  3. HYDROCHLOROTHIAZIDE [Concomitant]
     Route: 065
  4. SIMVASTATIN [Concomitant]
     Route: 065
  5. VERAPAMIL HCL [Concomitant]
     Route: 065
  6. KLOR-CON [Concomitant]
     Route: 065
  7. WALGREENS 325MG ASPIRIN [Concomitant]
     Route: 065
  8. VITAMIN E [Concomitant]
     Route: 065
  9. VITAMIN D [Concomitant]
     Route: 065

REACTIONS (1)
  - HAEMATOCHEZIA [None]
